FAERS Safety Report 21372297 (Version 1)
Quarter: 2022Q3

REPORT INFORMATION
  Report Type: Spontaneous
  Country: DE (occurrence: DE)
  Receive Date: 20220924
  Receipt Date: 20220924
  Transmission Date: 20221027
  Serious: Yes (Death, Life-Threatening, Hospitalization, Disabling, Other)
  Sender: FDA-Public Use
  Company Number: DE-NOVARTISPH-PHHY2019DE024309

PATIENT
  Age: 62 Year
  Sex: Male
  Weight: 79 kg

DRUGS (2)
  1. DOCETAXEL [Suspect]
     Active Substance: DOCETAXEL
     Indication: Lung adenocarcinoma
     Dosage: 60 MG/M2, QD, (FORM OF ADMIN: LIQUID TOTAL DAILY DOSE: 60 MG/M2 BSA)
     Route: 042
     Dates: start: 20181127
  2. NINTEDANIB [Suspect]
     Active Substance: NINTEDANIB
     Indication: Lung adenocarcinoma
     Dosage: 100 MG, QD (0.5)
     Route: 048
     Dates: start: 20181128, end: 20190122

REACTIONS (3)
  - Pulmonary sepsis [Fatal]
  - Nausea [Fatal]
  - Vomiting [Fatal]

NARRATIVE: CASE EVENT DATE: 20190119
